FAERS Safety Report 19013227 (Version 2)
Quarter: 2021Q1

REPORT INFORMATION
  Report Type: Spontaneous
  Country: US (occurrence: US)
  Receive Date: 20210315
  Receipt Date: 20210326
  Transmission Date: 20210420
  Serious: Yes (Other)
  Sender: FDA-Public Use
  Company Number: US-PFIZER INC-2018506307

PATIENT
  Age: 54 Year
  Sex: Male

DRUGS (3)
  1. XELJANZ [Suspect]
     Active Substance: TOFACITINIB CITRATE
     Indication: DRY EYE
  2. XELJANZ [Suspect]
     Active Substance: TOFACITINIB CITRATE
     Indication: RHEUMATOID ARTHRITIS
  3. XELJANZ [Suspect]
     Active Substance: TOFACITINIB CITRATE
     Indication: SJOGREN^S SYNDROME
     Dosage: 5 MG, 2X/DAY
     Route: 048

REACTIONS (4)
  - Cerebrovascular accident [Unknown]
  - Memory impairment [Unknown]
  - Confusional state [Unknown]
  - Loss of personal independence in daily activities [Unknown]
